FAERS Safety Report 8377250-5 (Version None)
Quarter: 2012Q2

REPORT INFORMATION
  Report Type: 
  Country: None (occurrence: None)
  Receive Date: 20120522
  Receipt Date: 20120517
  Transmission Date: 20120825
  Serious: Yes (Life-Threatening)
  Sender: FDA-Public Use
  Company Number: CA-ROCHE-650578

PATIENT
  Age: 61 Year
  Sex: Male
  Weight: 99 kg

DRUGS (1)
  1. RITUXAN [Suspect]
     Indication: LYMPHOMA
     Dosage: 7 TH DOSE RECEIVED ON 8 MAY 2009. DOSE ALSO REPORTED: 375 MG/M2, MAINTAINENCE TREATMENT
     Route: 042

REACTIONS (1)
  - SICK SINUS SYNDROME [None]
